FAERS Safety Report 5772157-1 (Version None)
Quarter: 2008Q2

REPORT INFORMATION
  Report Type: 
  Country: None (occurrence: None)
  Receive Date: 20080610
  Receipt Date: 20080529
  Transmission Date: 20081010
  Serious: Yes (Hospitalization, Disabling)
  Sender: FDA-Public Use
  Company Number: 234120J08USA

PATIENT
  Age: 56 Year
  Sex: Female

DRUGS (7)
  1. REBIF [Suspect]
     Indication: MULTIPLE SCLEROSIS
     Dosage: 44 MCG, 3 IN 1 WEEKS, SUBCUTANEOUS
     Route: 058
     Dates: start: 20070622
  2. ELAVIL [Concomitant]
  3. GABAPENTIN [Concomitant]
  4. CYMBALTA [Concomitant]
  5. FOLIC ACID [Concomitant]
  6. NAPROXEN [Concomitant]
  7. METHOTREXATE (METHOTREXATE /00113801/) [Concomitant]

REACTIONS (2)
  - BLINDNESS UNILATERAL [None]
  - GLAUCOMA [None]
